FAERS Safety Report 6829337-3 (Version None)
Quarter: 2010Q3

REPORT INFORMATION
  Report Type: 
  Country: None (occurrence: None)
  Receive Date: 20100709
  Receipt Date: 20070302
  Transmission Date: 20110219
  Serious: No
  Sender: FDA-Public Use
  Company Number: US-PFIZER INC-2007017035

PATIENT
  Sex: Male

DRUGS (3)
  1. CHANTIX [Suspect]
     Indication: SMOKING CESSATION THERAPY
     Dates: start: 20070210
  2. OXYCODONE HCL [Concomitant]
     Indication: SPINAL CORD INJURY
  3. BACLOFEN [Concomitant]
     Indication: SPINAL CORD INJURY

REACTIONS (2)
  - RASH [None]
  - URTICARIA [None]
